FAERS Safety Report 7733795-X (Version None)
Quarter: 2011Q3

REPORT INFORMATION
  Report Type: 
  Country: None (occurrence: None)
  Receive Date: 20110901
  Receipt Date: 20110822
  Transmission Date: 20111222
  Serious: Yes (Death)
  Sender: FDA-Public Use
  Company Number: 2011BN000075

PATIENT

DRUGS (4)
  1. MELPHALAN HYDROCHLORIDE [Suspect]
     Indication: BONE MARROW CONDITIONING REGIMEN
     Dosage: 100 MG/M**2; 1X; IV
     Route: 042
  2. CLOFARABINE [Suspect]
     Indication: BONE MARROW CONDITIONING REGIMEN
     Dosage: 40 MG/M**2; QD; IV
     Route: 042
  3. SIROLIMUS [Concomitant]
  4. TACROLIMUS [Concomitant]

REACTIONS (6)
  - HEPATOTOXICITY [None]
  - NEPHROPATHY TOXIC [None]
  - MULTI-ORGAN FAILURE [None]
  - CARDIOTOXICITY [None]
  - STOMATITIS [None]
  - INFECTION [None]
